FAERS Safety Report 23452383 (Version 1)
Quarter: 2024Q1

REPORT INFORMATION
  Report Type: Spontaneous
  Country: US (occurrence: None)
  Receive Date: 20240128
  Receipt Date: 20240128
  Transmission Date: 20240409
  Serious: Yes (Life-Threatening, Hospitalization)
  Sender: FDA-Public Use
  Company Number: None

PATIENT
  Age: 46 Year
  Sex: Female
  Weight: 113.4 kg

DRUGS (16)
  1. ALUNBRIG [Suspect]
     Active Substance: BRIGATINIB
     Indication: Neurofibromatosis
     Dosage: OTHER QUANTITY : 30 TABLET(S);?
     Route: 048
     Dates: start: 20230717, end: 20230719
  2. LEXAPRO [Concomitant]
     Active Substance: ESCITALOPRAM OXALATE
  3. ESIDRIX [Concomitant]
     Active Substance: HYDROCHLOROTHIAZIDE
  4. XANAX [Concomitant]
     Active Substance: ALPRAZOLAM
  5. METOPROLOL [Concomitant]
     Active Substance: METOPROLOL
  6. LIPITOR [Concomitant]
     Active Substance: ATORVASTATIN CALCIUM
  7. PLAVIX [Concomitant]
     Active Substance: CLOPIDOGREL BISULFATE
  8. ASPIRIN [Concomitant]
     Active Substance: ASPIRIN
  9. ZESTRIL [Concomitant]
     Active Substance: LISINOPRIL
  10. mini press [Concomitant]
  11. TRAZODONE [Concomitant]
     Active Substance: TRAZODONE HYDROCHLORIDE
  12. neurotin [Concomitant]
  13. VITAMIN D [Concomitant]
     Active Substance: VITAMIN D NOS
  14. b12 injections [Concomitant]
  15. VENTOLIN [Concomitant]
     Active Substance: ALBUTEROL SULFATE
  16. MAGOX [Concomitant]

REACTIONS (7)
  - Interstitial lung disease [None]
  - Loss of consciousness [None]
  - Liver disorder [None]
  - Spleen disorder [None]
  - Swelling [None]
  - Pancytopenia [None]
  - Myocardial infarction [None]

NARRATIVE: CASE EVENT DATE: 20230719
